FAERS Safety Report 8619424-1 (Version None)
Quarter: 2012Q3

REPORT INFORMATION
  Report Type: 
  Country: None (occurrence: None)
  Receive Date: 20120824
  Receipt Date: 20120813
  Transmission Date: 20120928
  Serious: Yes (Hospitalization, Other)
  Sender: FDA-Public Use
  Company Number: AU-BRISTOL-MYERS SQUIBB COMPANY-16688509

PATIENT
  Age: 70 Year
  Sex: Female

DRUGS (16)
  1. FOLIC ACID [Concomitant]
  2. ASPIRIN [Concomitant]
  3. METFORMIN HCL [Concomitant]
  4. METHOTREXATE [Concomitant]
  5. FUROSEMIDE [Concomitant]
  6. ATENOLOL [Concomitant]
  7. LIPITOR [Concomitant]
  8. ORENCIA [Suspect]
     Indication: RHEUMATOID ARTHRITIS
     Route: 042
     Dates: start: 20120516
  9. PREDNISOLONE [Concomitant]
  10. ACTONEL [Concomitant]
  11. CALCIUM [Concomitant]
  12. MELOXICAM [Concomitant]
  13. NEXIUM [Concomitant]
  14. FOLIC ACID [Concomitant]
  15. PREDNISONE TAB [Concomitant]
  16. HUMALOG [Concomitant]

REACTIONS (5)
  - ANAEMIA [None]
  - MOUTH ULCERATION [None]
  - INFLUENZA LIKE ILLNESS [None]
  - GASTROINTESTINAL DISORDER [None]
  - FATIGUE [None]
